FAERS Safety Report 21814697 (Version 2)
Quarter: 2023Q2

REPORT INFORMATION
  Report Type: Report from Study
  Country: US (occurrence: US)
  Receive Date: 20230104
  Receipt Date: 20230518
  Transmission Date: 20230722
  Serious: No
  Sender: FDA-Public Use
  Company Number: US-ABBVIE-4215725

PATIENT
  Sex: Female

DRUGS (2)
  1. SKYRIZI [Suspect]
     Active Substance: RISANKIZUMAB-RZAA
     Indication: Psoriasis
     Dosage: ONGOING
     Route: 058
     Dates: start: 20220525
  2. SKYRIZI [Suspect]
     Active Substance: RISANKIZUMAB-RZAA
     Dosage: SKYRIZI FORM STRENGTH: 150 MILLIGRAM
     Route: 057
     Dates: start: 202205

REACTIONS (5)
  - Nasopharyngitis [Recovering/Resolving]
  - Psoriasis [Unknown]
  - Sinusitis [Unknown]
  - Skin burning sensation [Unknown]
  - Skin discolouration [Unknown]

NARRATIVE: CASE EVENT DATE: 20220101
